FAERS Safety Report 7998386-4 (Version None)
Quarter: 2011Q4

REPORT INFORMATION
  Report Type: 
  Country: None (occurrence: None)
  Receive Date: 20111221
  Receipt Date: 20110908
  Transmission Date: 20120403
  Serious: No
  Sender: FDA-Public Use
  Company Number: US-GLAXOSMITHKLINE-A0943892A

PATIENT
  Age: 85 Year
  Sex: Male

DRUGS (3)
  1. VITAMIN TAB [Concomitant]
  2. ENALAPRIL MALEATE [Concomitant]
  3. LOVAZA [Suspect]
     Indication: LACRIMAL DISORDER
     Dosage: 1CAP TWICE PER DAY
     Route: 048
     Dates: start: 20101201

REACTIONS (1)
  - BLOOD TESTOSTERONE INCREASED [None]
